FAERS Safety Report 20055090 (Version 2)
Quarter: 2021Q4

REPORT INFORMATION
  Report Type: Spontaneous
  Country: FR (occurrence: FR)
  Receive Date: 20211110
  Receipt Date: 20211116
  Transmission Date: 20220303
  Serious: Yes (Congenital Anomaly, Other)
  Sender: FDA-Public Use
  Company Number: FR-ABBVIE-21K-056-4153512-00

PATIENT
  Sex: Female

DRUGS (2)
  1. VALPROATE SODIUM [Suspect]
     Active Substance: VALPROATE SODIUM
     Indication: Maternal exposure timing unspecified
     Route: 064
  2. FOLIC ACID [Suspect]
     Active Substance: FOLIC ACID
     Indication: Maternal exposure timing unspecified
     Route: 064

REACTIONS (51)
  - Gastrooesophageal reflux disease [Unknown]
  - Ear, nose and throat infection [Unknown]
  - Otitis media chronic [Unknown]
  - Hyperkeratosis [Unknown]
  - Pharyngeal disorder [Unknown]
  - Congenital foot malformation [Unknown]
  - Foot deformity [Unknown]
  - Oculogyric crisis [Unknown]
  - Hypoacusis [Unknown]
  - Joint laxity [Unknown]
  - Visual impairment [Unknown]
  - Pectus excavatum [Unknown]
  - Ear malformation [Unknown]
  - Speech disorder [Unknown]
  - Encopresis [Unknown]
  - Fine motor skill dysfunction [Unknown]
  - Behaviour disorder [Unknown]
  - Disturbance in attention [Unknown]
  - Disorientation [Unknown]
  - Disturbance in social behaviour [Unknown]
  - Dysgraphia [Unknown]
  - Learning disability [Unknown]
  - Dysmorphism [Unknown]
  - Nasal disorder [Unknown]
  - Ear disorder [Unknown]
  - Nasopharyngitis [Unknown]
  - Motor developmental delay [Unknown]
  - Arachnodactyly [Unknown]
  - Reading disorder [Unknown]
  - Loss of personal independence in daily activities [Unknown]
  - Motor developmental delay [Unknown]
  - Cognitive disorder [Unknown]
  - Speech sound disorder [Unknown]
  - Ear malformation [Unknown]
  - Dyspraxia [Unknown]
  - Tendon laxity [Unknown]
  - Learning disability [Unknown]
  - Attention deficit hyperactivity disorder [Unknown]
  - Disturbance in attention [Unknown]
  - Dyslexia [Unknown]
  - Mental impairment [Unknown]
  - Disturbance in social behaviour [Unknown]
  - Regurgitation [Unknown]
  - Intellectual disability [Unknown]
  - Speech sound disorder [Unknown]
  - Speech disorder developmental [Unknown]
  - Reading disorder [Unknown]
  - Amblyopia [Unknown]
  - Anxiety [Unknown]
  - Cough [Unknown]
  - Foetal exposure during pregnancy [Unknown]
